FAERS Safety Report 8049746-7 (Version None)
Quarter: 2012Q1

REPORT INFORMATION
  Report Type: 
  Country: None (occurrence: None)
  Receive Date: 20120110
  Receipt Date: 20120105
  Transmission Date: 20120608
  Serious: Yes (Death)
  Sender: FDA-Public Use
  Company Number: ADR-2012-00031

PATIENT
  Age: 51 Year
  Sex: Female

DRUGS (3)
  1. BACLOFEN [Suspect]
     Indication: HEAD INJURY
  2. BACLOFEN [Suspect]
     Indication: MUSCLE SPASTICITY
  3. BACLOFEN [Suspect]
     Indication: BRAIN INJURY

REACTIONS (2)
  - CONVULSION [None]
  - CARDIAC ARREST [None]
